FAERS Safety Report 5051711-9 (Version None)
Quarter: 2006Q3

REPORT INFORMATION
  Report Type: 
  Country: None (occurrence: None)
  Receive Date: 20060712
  Receipt Date: 20060712
  Transmission Date: 20061208
  Serious: No
  Sender: FDA-Public Use
  Company Number: None

PATIENT
  Age: 59 Year
  Sex: Male

DRUGS (4)
  1. ABACAVIR [Suspect]
     Indication: HIV INFECTION
     Dosage: 300 BID
     Dates: start: 20060301
  2. ATAZANAVIR [Suspect]
     Indication: HIV INFECTION
     Dosage: 400 MG DAILY
     Dates: start: 20060301
  3. RITONAVIR [Suspect]
     Dosage: 100 MG DAILY
  4. LAMIVUDINE [Suspect]
     Dosage: 150 MG BID

REACTIONS (3)
  - ORAL INTAKE REDUCED [None]
  - PANCREATITIS [None]
  - WEIGHT DECREASED [None]
